FAERS Safety Report 9660862 (Version 1)
Quarter: 2013Q4

REPORT INFORMATION
  Report Type: Spontaneous
  Country: CA (occurrence: CA)
  Receive Date: 20131031
  Receipt Date: 20131031
  Transmission Date: 20140711
  Serious: Yes (Disabling)
  Sender: FDA-Public Use
  Company Number: CA-ASTRAZENECA-2013SE78581

PATIENT
  Age: 61 Year
  Sex: Female
  Weight: 83 kg

DRUGS (10)
  1. NEXIUM [Suspect]
     Route: 048
  2. ASA [Concomitant]
  3. CALCIUM [Concomitant]
  4. MAGNESIUM [Concomitant]
  5. COVERSYL [Concomitant]
  6. ELTROXIN [Concomitant]
  7. INDAPAMIDE [Concomitant]
  8. METFORMIN [Concomitant]
  9. VITAMIN D [Concomitant]
  10. VITAMINS [Concomitant]

REACTIONS (1)
  - Disability [Not Recovered/Not Resolved]
